FAERS Safety Report 17550532 (Version 1)
Quarter: 2020Q1

REPORT INFORMATION
  Report Type: Spontaneous
  Country: GB (occurrence: GB)
  Receive Date: 20200317
  Receipt Date: 20200317
  Transmission Date: 20200409
  Serious: Yes (Other)
  Sender: FDA-Public Use
  Company Number: GB-TEVA-2020-GB-1203663

PATIENT
  Age: 32 Year
  Sex: Male

DRUGS (3)
  1. ARIPIPRAZOLE. [Suspect]
     Active Substance: ARIPIPRAZOLE
     Dosage: 20 MILLIGRAM DAILY;
     Route: 065
  2. ARIPIPRAZOLE. [Suspect]
     Active Substance: ARIPIPRAZOLE
     Indication: SCHIZOPHRENIA
     Dosage: 5 MILLIGRAM DAILY;
     Route: 065
  3. RISPERIDONE. [Suspect]
     Active Substance: RISPERIDONE
     Indication: SCHIZOPHRENIA
     Dosage: 4 MILLIGRAM DAILY;
     Route: 065

REACTIONS (4)
  - Hypersexuality [Recovered/Resolved]
  - Erectile dysfunction [Recovered/Resolved]
  - Libido decreased [Recovered/Resolved]
  - Homosexuality [Recovered/Resolved]
